FAERS Safety Report 5958322-9 (Version None)
Quarter: 2008Q4

REPORT INFORMATION
  Report Type: 
  Country: None (occurrence: None)
  Receive Date: 20081119
  Receipt Date: 20081113
  Transmission Date: 20090506
  Serious: Yes (Hospitalization)
  Sender: FDA-Public Use
  Company Number: CG-MERCK-0811USA02321

PATIENT
  Age: 31 Year
  Sex: Male

DRUGS (1)
  1. MECTIZAN [Suspect]
     Route: 048
     Dates: start: 20071201, end: 20071201

REACTIONS (8)
  - ARTHRALGIA [None]
  - ASTHENIA [None]
  - GAIT DISTURBANCE [None]
  - HEADACHE [None]
  - OCULAR HYPERAEMIA [None]
  - PARAPLEGIA [None]
  - PRURITUS [None]
  - STUPOR [None]
